FAERS Safety Report 6471457-X (Version None)
Quarter: 2009Q4

REPORT INFORMATION
  Report Type: 
  Country: None (occurrence: None)
  Receive Date: 20091203
  Receipt Date: 20080301
  Transmission Date: 20100525
  Serious: Yes (Other)
  Sender: FDA-Public Use
  Company Number: TR-ELI_LILLY_AND_COMPANY-TR200803000070

PATIENT
  Sex: Female
  Weight: 160 kg

DRUGS (4)
  1. HUMULIN 70/30 [Suspect]
     Indication: TYPE 2 DIABETES MELLITUS
     Dosage: 24 UNITS/MORNING
     Route: 058
  2. HUMULIN 70/30 [Suspect]
     Dosage: 28 U, EACH EVENING
     Route: 058
  3. ORAL ANTIDIABETICS [Concomitant]
     Dosage: UNK, DAILY (1/D), AT NOON
     Route: 048
     Dates: start: 20060101
  4. INSULIN [Concomitant]
     Dosage: UNK, UNKNOWN
     Route: 065
     Dates: start: 20030101

REACTIONS (1)
  - EYE HAEMORRHAGE [None]
